FAERS Safety Report 12472078 (Version 2)
Quarter: 2016Q3

REPORT INFORMATION
  Report Type: Spontaneous
  Country: FR (occurrence: FR)
  Receive Date: 20160616
  Receipt Date: 20160727
  Transmission Date: 20161109
  Serious: Yes (Hospitalization)
  Sender: FDA-Public Use
  Company Number: FR-CELGENEUS-FRA-2016061178

PATIENT
  Age: 57 Year
  Sex: Male

DRUGS (4)
  1. POMALIDOMIDE [Suspect]
     Active Substance: POMALIDOMIDE
     Indication: PLASMA CELL MYELOMA
     Route: 048
     Dates: start: 20140811, end: 20141020
  2. NEODEX [Suspect]
     Active Substance: DEXAMETHASONE\NEOMYCIN
     Indication: PLASMA CELL MYELOMA
     Route: 048
     Dates: start: 20100212
  3. NEODEX [Suspect]
     Active Substance: DEXAMETHASONE\NEOMYCIN
     Route: 048
     Dates: start: 20130416
  4. NEODEX [Suspect]
     Active Substance: DEXAMETHASONE\NEOMYCIN
     Route: 048
     Dates: start: 20140811, end: 20141020

REACTIONS (2)
  - Humerus fracture [Recovered/Resolved]
  - Femur fracture [Recovered/Resolved]

NARRATIVE: CASE EVENT DATE: 20141020
